FAERS Safety Report 4990224-7 (Version None)
Quarter: 2006Q2

REPORT INFORMATION
  Report Type: 
  Country: None (occurrence: None)
  Receive Date: 20060503
  Receipt Date: 20060301
  Transmission Date: 20061013
  Serious: Yes (Hospitalization)
  Sender: FDA-Public Use
  Company Number: US-MERCK-0603USA00487

PATIENT
  Age: 63 Year
  Sex: Male
  Weight: 70 kg

DRUGS (4)
  1. VIOXX [Suspect]
     Indication: PAIN IN EXTREMITY
     Route: 048
     Dates: end: 20040901
  2. VIOXX [Suspect]
     Route: 048
     Dates: start: 20011201
  3. CLARITIN [Concomitant]
     Route: 065
  4. ZANTAC [Concomitant]
     Route: 065

REACTIONS (6)
  - ANAEMIA [None]
  - CAROTID ARTERY STENOSIS [None]
  - CEREBROVASCULAR ACCIDENT [None]
  - GASTROOESOPHAGEAL REFLUX DISEASE [None]
  - GLYCOSYLATED HAEMOGLOBIN INCREASED [None]
  - SINUSITIS [None]
